FAERS Safety Report 24730326 (Version 1)
Quarter: 2024Q4

REPORT INFORMATION
  Report Type: Spontaneous
  Country: US (occurrence: US)
  Receive Date: 20241213
  Receipt Date: 20241213
  Transmission Date: 20250115
  Serious: No
  Sender: TAKEDA
  Company Number: US-TAKEDA-2024TUS121587

PATIENT
  Sex: Female
  Weight: 88 kg

DRUGS (2)
  1. VONVENDI [Suspect]
     Active Substance: VON WILLEBRAND FACTOR (RECOMBINANT)
     Indication: Von Willebrand^s disease
     Dosage: 3376 INTERNATIONAL UNIT
     Dates: start: 20241130, end: 20241130
  2. VONVENDI [Suspect]
     Active Substance: VON WILLEBRAND FACTOR (RECOMBINANT)
     Dosage: 3376 INTERNATIONAL UNIT

REACTIONS (2)
  - Feeling cold [Unknown]
  - Swollen tongue [Unknown]
